FAERS Safety Report 7958305 (Version 7)
Quarter: 2013Q4

REPORT INFORMATION
  Report Type: Spontaneous
  Country: US (occurrence: US)
  Receive Date: 20110524
  Receipt Date: 20131023
  Transmission Date: 20140711
  Serious: Yes (Other)
  Sender: FDA-Public Use
  Company Number: US-BAYER-2011-043482

PATIENT
  Age: 45 Year
  Sex: Female
  Weight: 65.76 kg

DRUGS (5)
  1. YASMIN [Suspect]
     Indication: FIBROMA
     Dosage: UNK
     Dates: start: 200301, end: 200305
  2. TAMOXIFEN [Concomitant]
     Indication: NEOPLASM PROPHYLAXIS
     Dosage: UNK
     Dates: start: 200512, end: 201012
  3. NASONEX [Concomitant]
     Indication: SEASONAL ALLERGY
     Dosage: UNK
     Dates: start: 2006
  4. CLARITIN [Concomitant]
     Dosage: UNK
     Dates: start: 20030117
  5. ZOLOFT [Concomitant]
     Dosage: UNK
     Dates: start: 20030129

REACTIONS (4)
  - Gallbladder disorder [None]
  - Pain [None]
  - Cholelithiasis [None]
  - Cholecystitis chronic [None]
